FAERS Safety Report 4590289-0 (Version None)
Quarter: 2005Q1

REPORT INFORMATION
  Report Type: 
  Country: None (occurrence: None)
  Receive Date: 20050224
  Receipt Date: 20050218
  Transmission Date: 20050727
  Serious: Yes (Other)
  Sender: FDA-Public Use
  Company Number: PHNU2005DE01017

PATIENT
  Sex: Female

DRUGS (7)
  1. SOLIAN [Suspect]
     Dosage: 200 MG, QD
     Route: 048
     Dates: start: 20030311, end: 20030318
  2. SOLIAN [Suspect]
     Dosage: 100 MG, QD
     Route: 048
     Dates: start: 20030319, end: 20030321
  3. LUDIOMIL [Suspect]
     Indication: DEPRESSION
     Dosage: 150MG/DAY
     Route: 048
     Dates: start: 20030218, end: 20030323
  4. AKINETON [Concomitant]
     Dosage: 4MG/DAY
     Route: 048
     Dates: start: 20020901, end: 20030404
  5. ATOSIL [Concomitant]
     Dosage: 75MG/DAY
     Route: 048
     Dates: start: 20020903, end: 20030408
  6. ZYPREXA [Suspect]
     Dosage: 5 MG, QD
     Route: 048
     Dates: start: 20030325, end: 20030331
  7. BELOC-ZOK [Concomitant]
     Dosage: 1 TO 2 DF/DAY
     Route: 048
     Dates: start: 20030328, end: 20030409

REACTIONS (6)
  - DRUG INTERACTION [None]
  - PAIN IN EXTREMITY [None]
  - PARKINSONIAN GAIT [None]
  - PARKINSONISM [None]
  - SENSATION OF HEAVINESS [None]
  - TREMOR [None]
